FAERS Safety Report 4292632-9 (Version None)
Quarter: 2004Q1

REPORT INFORMATION
  Report Type: 
  Country: None (occurrence: None)
  Receive Date: 20040126
  Receipt Date: 20031007
  Transmission Date: 20041129
  Serious: No
  Sender: FDA-Public Use
  Company Number: USA031048892

PATIENT
  Age: 88 Year
  Sex: Female
  Weight: 91 kg

DRUGS (11)
  1. FORTEO [Suspect]
     Dates: start: 20031001
  2. INSULIN LENTE (INSULIN ZINC SUSPENSION) [Concomitant]
  3. COUMADIN [Concomitant]
  4. PREDNISONE [Concomitant]
  5. ALLOPURINOL [Concomitant]
  6. LASIX [Concomitant]
  7. POTASSIUM [Concomitant]
  8. ZOCOR [Concomitant]
  9. LEVOXYL [Concomitant]
  10. FOSAMAX [Concomitant]
  11. OXYGEN [Concomitant]

REACTIONS (2)
  - HERPES ZOSTER [None]
  - RASH PRURITIC [None]
